FAERS Safety Report 23336546 (Version 1)
Quarter: 2023Q4

REPORT INFORMATION
  Report Type: Report from Study
  Country: US (occurrence: US)
  Receive Date: 20231226
  Receipt Date: 20231226
  Transmission Date: 20240110
  Serious: Yes (Hospitalization)
  Sender: FDA-Public Use
  Company Number: US-ABBVIE-5555299

PATIENT
  Sex: Female

DRUGS (1)
  1. HUMIRA [Suspect]
     Active Substance: ADALIMUMAB
     Indication: Product used for unknown indication
     Route: 058

REACTIONS (8)
  - Blood pressure increased [Unknown]
  - Muscle fatigue [Unknown]
  - Pain in extremity [Unknown]
  - Pain [Unknown]
  - Heart rate increased [Unknown]
  - Pericarditis [Unknown]
  - Fatigue [Unknown]
  - Drug ineffective [Unknown]
